FAERS Safety Report 8825588 (Version 1)
Quarter: 2012Q4

REPORT INFORMATION
  Report Type: 
  Country: CN (occurrence: CN)
  Receive Date: 20121004
  Receipt Date: 20121004
  Transmission Date: 20130627
  Serious: Yes (Hospitalization)
  Sender: FDA-Public Use
  Company Number: CN-PFIZER INC-2009233725

PATIENT
  Age: 12 Year
  Sex: Male
  Weight: 30.5 kg

DRUGS (4)
  1. IBUPROFEN [Suspect]
     Indication: UPPER RESPIRATORY TRACT INFECTION
     Dosage: 200 mg, 3x/day
     Route: 048
     Dates: start: 20060206, end: 20060208
  2. IBUPROFEN [Suspect]
     Indication: PYREXIA
  3. CEFRADINE [Suspect]
     Indication: ANTIBIOTIC THERAPY
     Dosage: 3 g, UNK
     Route: 042
  4. CEFRADINE [Suspect]
     Indication: UPPER RESPIRATORY TRACT INFECTION

REACTIONS (2)
  - Gastrointestinal haemorrhage [Recovered/Resolved]
  - Syncope [Recovered/Resolved]
